FAERS Safety Report 19615154 (Version 1)
Quarter: 2021Q3

REPORT INFORMATION
  Report Type: Spontaneous
  Country: US (occurrence: US)
  Receive Date: 20210727
  Receipt Date: 20210727
  Transmission Date: 20211014
  Serious: Yes (Other)
  Sender: FDA-Public Use
  Company Number: US-INCYTE CORPORATION-2021IN006628

PATIENT

DRUGS (2)
  1. JAKAFI [Suspect]
     Active Substance: RUXOLITINIB
     Indication: GRAFT VERSUS HOST DISEASE
     Route: 065
  2. PROMACTA [Concomitant]
     Active Substance: ELTROMBOPAG OLAMINE
     Indication: PLATELET COUNT DECREASED
     Route: 065

REACTIONS (5)
  - Platelet count increased [Not Recovered/Not Resolved]
  - Condition aggravated [Unknown]
  - Haemorrhage [Not Recovered/Not Resolved]
  - Graft versus host disease [Unknown]
  - Drug ineffective [Unknown]
